FAERS Safety Report 5408251-4 (Version None)
Quarter: 2007Q3

REPORT INFORMATION
  Report Type: 
  Country: None (occurrence: None)
  Receive Date: 20070806
  Receipt Date: 20070725
  Transmission Date: 20080115
  Serious: Yes (Life-Threatening, Hospitalization)
  Sender: FDA-Public Use
  Company Number: 2007BI015610

PATIENT
  Age: 63 Year
  Sex: Male
  Weight: 76 kg

DRUGS (3)
  1. AVONEX [Suspect]
     Indication: MULTIPLE SCLEROSIS
     Dosage: 30 UG; QW;
     Dates: start: 19970101, end: 20070624
  2. MONOFLAM [Concomitant]
  3. NOVAMIN [Concomitant]

REACTIONS (4)
  - INTESTINAL PERFORATION [None]
  - PERITONITIS [None]
  - PNEUMONIA [None]
  - WEIGHT DECREASED [None]
